FAERS Safety Report 7363890-9 (Version None)
Quarter: 2011Q1

REPORT INFORMATION
  Report Type: 
  Country: None (occurrence: None)
  Receive Date: 20110321
  Receipt Date: 20110310
  Transmission Date: 20110831
  Serious: Yes (Hospitalization)
  Sender: FDA-Public Use
  Company Number: NL-ROCHE-764878

PATIENT
  Age: 60 Year
  Sex: Male
  Weight: 100.6 kg

DRUGS (19)
  1. CYCLOSPORINE [Suspect]
     Route: 048
     Dates: start: 20100114, end: 20100316
  2. CYCLOSPORINE [Suspect]
     Route: 048
     Dates: start: 20100317
  3. PREDNISOLONE [Suspect]
     Route: 048
     Dates: start: 20101029, end: 20101122
  4. MYCOPHENOLATE MOFETIL [Suspect]
     Route: 048
     Dates: start: 20090116
  5. MYCOPHENOLATE MOFETIL [Suspect]
     Route: 048
  6. PREDNISOLONE [Suspect]
     Route: 048
     Dates: start: 20101128, end: 20101202
  7. PREDNISOLONE [Suspect]
     Route: 048
     Dates: start: 20101203
  8. ENALAPRIL MALEATE [Concomitant]
     Dates: start: 20091013
  9. TAMSULOSIN HCL [Concomitant]
     Dates: start: 20091013
  10. CYCLOSPORINE [Suspect]
     Route: 048
     Dates: start: 20090116
  11. PREDNISOLONE [Suspect]
     Route: 048
     Dates: start: 20101124, end: 20101126
  12. PREDNISOLONE [Suspect]
     Route: 048
     Dates: start: 20101020, end: 20101028
  13. PREDNISOLONE [Suspect]
     Route: 048
     Dates: start: 20101123, end: 20101126
  14. PREDNISOLONE [Suspect]
     Route: 048
     Dates: start: 20090114, end: 20101019
  15. PANTOPRAZOLE [Concomitant]
     Dates: start: 20090115
  16. METOPROLOL SUCCINATE [Concomitant]
     Dates: start: 20091013
  17. MYCOPHENOLATE MOFETIL [Suspect]
     Route: 048
     Dates: start: 20100114
  18. PRAVASTATIN [Concomitant]
  19. INSULIN GLARGINE [Concomitant]

REACTIONS (2)
  - CELLULITIS [None]
  - OSTEOMYELITIS [None]
